FAERS Safety Report 14210601 (Version 2)
Quarter: 2018Q4

REPORT INFORMATION
  Report Type: Spontaneous
  Country: ZA (occurrence: ZA)
  Receive Date: 20171121
  Receipt Date: 20181018
  Transmission Date: 20190204
  Serious: Yes (Disabling)
  Sender: FDA-Public Use
  Company Number: ZA-PFIZER INC-2017496011

PATIENT
  Age: 33 Year
  Sex: Female
  Weight: 83 kg

DRUGS (3)
  1. METHOTREXATE. [Suspect]
     Active Substance: METHOTREXATE
     Dosage: 25 MG, WEEKLY
     Dates: start: 201301
  2. CHLOROQUINE. [Suspect]
     Active Substance: CHLOROQUINE
     Dosage: 200 MG, DAILY
     Dates: start: 201302
  3. AZT [Suspect]
     Active Substance: ZIDOVUDINE
     Dosage: 100 MG, DAILY
     Dates: start: 201302

REACTIONS (1)
  - Rheumatoid arthritis [Unknown]

NARRATIVE: CASE EVENT DATE: 201308
